FAERS Safety Report 17045629 (Version 8)
Quarter: 2021Q1

REPORT INFORMATION
  Report Type: Report from Study
  Country: JP (occurrence: JP)
  Receive Date: 20191118
  Receipt Date: 20210324
  Transmission Date: 20210419
  Serious: Yes (Hospitalization, Other)
  Sender: FDA-Public Use
  Company Number: JP-ALEXION PHARMACEUTICALS INC.-A201917348

PATIENT
  Age: 7 Year
  Sex: Male

DRUGS (17)
  1. ALLELOCK [Concomitant]
     Active Substance: OLOPATADINE HYDROCHLORIDE
     Dosage: 0.5 G, BIW
     Route: 048
     Dates: start: 20191125
  2. HIRUDOID                           /00723701/ [Concomitant]
     Active Substance: PENTOSAN POLYSULFATE SODIUM
     Indication: PRODUCT USED FOR UNKNOWN INDICATION
     Dosage: 1?2G, BID
     Route: 065
  3. STRENSIQ [Suspect]
     Active Substance: ASFOTASE ALFA
     Indication: HYPOPHOSPHATASIA
     Dosage: 2 MG/KG, TIW
     Route: 058
     Dates: start: 20150925, end: 20191122
  4. ALLELOCK [Concomitant]
     Active Substance: OLOPATADINE HYDROCHLORIDE
     Indication: PROPHYLAXIS
     Dosage: 0.5 G, TIW
     Route: 048
     Dates: end: 20191122
  5. GLUCONSAN K [Concomitant]
     Active Substance: POTASSIUM GLUCONATE
     Indication: HYPOPHOSPHATASIA
     Dosage: 1.6 G, TID
     Route: 048
  6. EMLA [Concomitant]
     Active Substance: LIDOCAINE\PRILOCAINE
     Dosage: 2 DF, BIW
     Route: 065
     Dates: start: 20191125
  7. HYALEIN [Concomitant]
     Active Substance: HYALURONATE SODIUM
     Indication: PROPHYLAXIS
     Dosage: A FEW DROPS, UNK
     Route: 065
     Dates: end: 20191025
  8. STRENSIQ [Suspect]
     Active Substance: ASFOTASE ALFA
     Dosage: 2 MG/KG, BIW
     Route: 058
     Dates: start: 20191125
  9. THYRADIN S [Concomitant]
     Active Substance: LEVOTHYROXINE SODIUM
     Indication: HYPOPHOSPHATASIA
     Dosage: 0.3 G, QD
     Route: 048
  10. L CARTIN FF [Concomitant]
     Active Substance: LEVOCARNITINE
     Indication: HYPOPHOSPHATASIA
     Dosage: 1.5 ML, TID
     Route: 048
  11. SOLITA?T 3G [Concomitant]
     Indication: HYPOPHOSPHATASIA
     Dosage: 1 DF, QD
     Route: 048
     Dates: start: 20200626
  12. EMLA [Concomitant]
     Active Substance: LIDOCAINE\PRILOCAINE
     Indication: PROPHYLAXIS
     Dosage: 2 DF, TIW
     Route: 065
     Dates: end: 20191122
  13. DANTRIUM [Concomitant]
     Active Substance: DANTROLENE SODIUM
     Indication: HYPOPHOSPHATASIA
     Dosage: 0.47 CAPSULE, TID
     Route: 048
  14. BIOSMIN                            /02086901/ [Concomitant]
     Indication: HYPOPHOSPHATASIA
     Dosage: 0.3 G, TID
     Route: 048
  15. PHENOBAL                           /00023201/ [Concomitant]
     Active Substance: PHENOBARBITAL
     Indication: HYPOPHOSPHATASIA
     Dosage: 0.3 G, BID
     Route: 048
  16. PYRIDOXAL [Concomitant]
     Active Substance: PYRIDOXAL
     Indication: HYPOPHOSPHATASIA
     Dosage: 3.3 DF, TID
     Route: 048
  17. BESOFTEN [Concomitant]
     Active Substance: PENTOSAN POLYSULFATE SODIUM
     Indication: PROPHYLAXIS
     Dosage: 1?2G, QD
     Route: 065

REACTIONS (7)
  - Humerus fracture [Not Recovered/Not Resolved]
  - Heart rate decreased [Recovered/Resolved]
  - Condition aggravated [Unknown]
  - Hypertension [Recovered/Resolved]
  - Musculoskeletal disorder [Unknown]
  - Hypercalciuria [Not Recovered/Not Resolved]
  - Bradycardia [Recovering/Resolving]

NARRATIVE: CASE EVENT DATE: 20191030
